FAERS Safety Report 11233975 (Version 1)
Quarter: 2015Q3

REPORT INFORMATION
  Report Type: Spontaneous
  Country: CA (occurrence: CA)
  Receive Date: 20150702
  Receipt Date: 20150702
  Transmission Date: 20151125
  Serious: Yes (Other)
  Sender: FDA-Public Use
  Company Number: CA-TEVA-574112ACC

PATIENT
  Age: 78 Year
  Sex: Female

DRUGS (8)
  1. RISEDRONATE SODIUM. [Suspect]
     Active Substance: RISEDRONATE SODIUM
     Indication: OSTEOPOROSIS
     Dosage: .1429 DOSAGE FORMS DAILY;
     Route: 065
  2. RIVASA FC [Concomitant]
     Dosage: UNKNOWN FORM STRENGTH
     Route: 065
  3. PRO-CAL D 400 [Concomitant]
     Dosage: UNKNOWN FORM STRENGTH
     Route: 065
  4. TYLENOL [Concomitant]
     Active Substance: ACETAMINOPHEN
     Dosage: UNKNOWN FORM STRENGTH
     Route: 065
  5. DIOVAN-HCT 160/25MG [Concomitant]
     Dosage: UNKNOWN FORM STRENGTH
     Route: 065
  6. AMLODIPINE [Concomitant]
     Active Substance: AMLODIPINE BESYLATE
     Dosage: UNKNOWN FORM STRENGTH
     Route: 065
  7. NEXIUM [Concomitant]
     Active Substance: ESOMEPRAZOLE MAGNESIUM
     Dosage: UNKNOWN FORM STRENGTH
     Route: 065
  8. PRAVASTATIN [Concomitant]
     Active Substance: PRAVASTATIN\PRAVASTATIN SODIUM
     Dosage: UNKNOWN FORM STRENGTH
     Route: 065

REACTIONS (2)
  - Condition aggravated [Not Recovered/Not Resolved]
  - Hypertension [Not Recovered/Not Resolved]
